FAERS Safety Report 8461851-X (Version None)
Quarter: 2012Q2

REPORT INFORMATION
  Report Type: 
  Country: None (occurrence: None)
  Receive Date: 20120625
  Receipt Date: 20120620
  Transmission Date: 20120825
  Serious: Yes (Life-Threatening)
  Sender: FDA-Public Use
  Company Number: FR-ASTELLAS-2012US005629

PATIENT
  Age: 63 Year
  Sex: Male
  Weight: 75 kg

DRUGS (3)
  1. TARCEVA [Suspect]
     Indication: NEOPLASM MALIGNANT
     Dosage: 25 MG, UID/QD
     Route: 048
     Dates: start: 20081001, end: 20120428
  2. CISPLATIN [Suspect]
     Indication: NEOPLASM MALIGNANT
     Dosage: 145 MG, CYCLIC
     Route: 042
     Dates: start: 20080201, end: 20080501
  3. NAVELBINE [Suspect]
     Indication: NEOPLASM MALIGNANT
     Dosage: 55 MG, DAY 1 TO DAY 8
     Route: 065
     Dates: start: 20080201, end: 20080501

REACTIONS (1)
  - ACUTE MYELOID LEUKAEMIA [None]
